FAERS Safety Report 20338039 (Version 2)
Quarter: 2025Q1

REPORT INFORMATION
  Report Type: Spontaneous
  Country: JP (occurrence: JP)
  Receive Date: 20220115
  Receipt Date: 20250222
  Transmission Date: 20250409
  Serious: Yes (Hospitalization)
  Sender: ROCHE
  Company Number: JP-CHUGAI-2022000050

PATIENT
  Age: 62 Year
  Sex: Female

DRUGS (1)
  1. ACTEMRA [Suspect]
     Active Substance: TOCILIZUMAB
     Indication: Castleman^s disease
     Dosage: ONCE/WEEK
     Route: 042

REACTIONS (3)
  - Disease progression [Unknown]
  - Neutralising antibodies positive [Not Recovered/Not Resolved]
  - Therapeutic product effect decreased [Unknown]
